FAERS Safety Report 20690482 (Version 1)
Quarter: 2022Q2

REPORT INFORMATION
  Report Type: Report from Study
  Country: ID (occurrence: None)
  Receive Date: 20220408
  Receipt Date: 20220408
  Transmission Date: 20220721
  Serious: Yes (Death)
  Sender: FDA-Public Use
  Company Number: 2022A141314

PATIENT
  Sex: Female

DRUGS (4)
  1. FASLODEX [Suspect]
     Active Substance: FULVESTRANT
     Indication: Hormone receptor positive breast cancer
     Dosage: 2 TIMES500.0MG UNKNOWN
     Route: 030
     Dates: start: 20220113
  2. FASLODEX [Suspect]
     Active Substance: FULVESTRANT
     Indication: Breast cancer metastatic
     Dosage: 2 TIMES500.0MG UNKNOWN
     Route: 030
     Dates: start: 20220113
  3. FASLODEX [Suspect]
     Active Substance: FULVESTRANT
     Indication: Antioestrogen therapy
     Dosage: 2 TIMES500.0MG UNKNOWN
     Route: 030
     Dates: start: 20220113
  4. FASLODEX [Suspect]
     Active Substance: FULVESTRANT
     Indication: Disease progression
     Dosage: 2 TIMES500.0MG UNKNOWN
     Route: 030
     Dates: start: 20220113

REACTIONS (1)
  - Death [Fatal]
